FAERS Safety Report 4955419-7 (Version None)
Quarter: 2006Q1

REPORT INFORMATION
  Report Type: 
  Country: None (occurrence: None)
  Receive Date: 20060322
  Receipt Date: 20060315
  Transmission Date: 20060701
  Serious: Yes (Hospitalization, Other)
  Sender: FDA-Public Use
  Company Number: 2006026317

PATIENT
  Sex: Male

DRUGS (3)
  1. NEURONTIN [Suspect]
     Indication: ANXIETY DISORDER
     Dosage: 3600 MG (1200 MG, 3 IN 1 D)
  2. NEURONTIN [Suspect]
     Indication: SCHIZOAFFECTIVE DISORDER
     Dosage: 3600 MG (1200 MG, 3 IN 1 D)
  3. SEROQUEL [Suspect]
     Indication: ILL-DEFINED DISORDER
     Dosage: 900 MG

REACTIONS (7)
  - CARDIAC FAILURE CONGESTIVE [None]
  - COR PULMONALE [None]
  - EMPHYSEMA [None]
  - EXERCISE TOLERANCE DECREASED [None]
  - OEDEMA PERIPHERAL [None]
  - PNEUMONIA [None]
  - WEIGHT INCREASED [None]
